FAERS Safety Report 21417939 (Version 2)
Quarter: 2022Q4

REPORT INFORMATION
  Report Type: Spontaneous
  Country: PK (occurrence: None)
  Receive Date: 20221006
  Receipt Date: 20221021
  Transmission Date: 20230113
  Serious: Yes (Death, Hospitalization, Other)
  Sender: FDA-Public Use
  Company Number: PK-ROCHE-3187172

PATIENT
  Age: 8 Month
  Sex: Female
  Weight: 4.3 kg

DRUGS (1)
  1. EVRYSDI [Suspect]
     Active Substance: RISDIPLAM
     Indication: Product used for unknown indication
     Route: 065
     Dates: start: 20220922

REACTIONS (9)
  - Respiratory disorder [Unknown]
  - Death [Fatal]
  - Respiratory distress [Unknown]
  - Sneezing [Unknown]
  - Vomiting [Unknown]
  - Pyrexia [Unknown]
  - Heart rate decreased [Unknown]
  - Post procedural haemorrhage [Unknown]
  - Abdominal discomfort [Unknown]

NARRATIVE: CASE EVENT DATE: 20220925
